FAERS Safety Report 8835948 (Version 2)
Quarter: 2012Q4

REPORT INFORMATION
  Report Type: Report from Study
  Country: FR (occurrence: FR)
  Receive Date: 20121011
  Receipt Date: 20121114
  Transmission Date: 20130627
  Serious: Yes (Death, Hospitalization)
  Sender: FDA-Public Use
  Company Number: FR-CELGENEUS-056-50794-12071610

PATIENT
  Age: 67 Year
  Sex: Male
  Weight: 87 kg

DRUGS (9)
  1. VIDAZA [Suspect]
     Indication: MDS
     Dosage: 150 Milligram
     Route: 058
     Dates: start: 20120410, end: 20120626
  2. VIDAZA [Suspect]
     Dosage: 150 Milligram
     Route: 065
     Dates: start: 20120626, end: 20120705
  3. VIDAZA [Suspect]
     Route: 058
     Dates: start: 20120919, end: 20120925
  4. REVLIMID [Suspect]
     Indication: MDS
     Dosage: 10 Milligram
     Route: 048
     Dates: start: 20120410
  5. REVLIMID [Suspect]
     Dosage: 10 Milligram
     Route: 048
     Dates: start: 20120626, end: 20120705
  6. ZYLORIC [Concomitant]
     Indication: HYPERURICEMIA
     Dosage: 200 Milligram
     Route: 048
     Dates: start: 1988
  7. ATARAX [Concomitant]
     Indication: DRUG USE FOR UNKNOWN INDICATION
     Dosage: 25
     Route: 048
  8. VITAMINE B1B6 [Concomitant]
     Indication: DRUG USE FOR UNKNOWN INDICATION
     Dosage: 3 Tablet
     Route: 048
  9. DOLIPRANE [Concomitant]
     Indication: PAIN
     Route: 065

REACTIONS (3)
  - Erysipelas [Not Recovered/Not Resolved]
  - Sepsis [Fatal]
  - Sepsis [Recovered/Resolved with Sequelae]
